FAERS Safety Report 19561086 (Version 3)
Quarter: 2021Q3

REPORT INFORMATION
  Report Type: Spontaneous
  Country: US (occurrence: US)
  Receive Date: 20210716
  Receipt Date: 20210811
  Transmission Date: 20211014
  Serious: Yes (Other)
  Sender: FDA-Public Use
  Company Number: US-NOVOPROD-825311

PATIENT
  Sex: Female

DRUGS (2)
  1. INSULIN ASPART FLEXPEN [Suspect]
     Active Substance: INSULIN ASPART
     Indication: PRODUCT USED FOR UNKNOWN INDICATION
     Dosage: 19 IU, QD (7 UNITS IN AM, 7 UNITS AT LUNCH, 5 UNITS AT DINNER)
     Route: 058
  2. LEVEMIR [Concomitant]
     Active Substance: INSULIN DETEMIR
     Indication: PRODUCT USED FOR UNKNOWN INDICATION
     Dosage: UNK
     Route: 058

REACTIONS (4)
  - Road traffic accident [Recovered/Resolved]
  - Product quality issue [Unknown]
  - Wrist fracture [Recovering/Resolving]
  - Blood glucose increased [Unknown]

NARRATIVE: CASE EVENT DATE: 202105
